FAERS Safety Report 18385574 (Version 2)
Quarter: 2020Q4

REPORT INFORMATION
  Report Type: Report from Study
  Country: CA (occurrence: CA)
  Receive Date: 20201015
  Receipt Date: 20201023
  Transmission Date: 20210114
  Serious: Yes (Hospitalization, Other)
  Sender: FDA-Public Use
  Company Number: CA-TAIHO ONCOLOGY  INC-EU-2020-03486

PATIENT
  Age: 68 Year
  Sex: Female
  Weight: 70.2 kg

DRUGS (1)
  1. LONSURF [Suspect]
     Active Substance: TIPIRACIL HYDROCHLORIDE\TRIFLURIDINE
     Indication: COLORECTAL CANCER METASTATIC
     Dosage: CYCLE 1; DOSE AND FREQUENCY UNKNOWN
     Route: 048

REACTIONS (4)
  - Anaemia [Unknown]
  - Bacteraemia [Unknown]
  - Product dose omission issue [Unknown]
  - Blood test abnormal [Unknown]
